FAERS Safety Report 8371161-7 (Version None)
Quarter: 2012Q2

REPORT INFORMATION
  Report Type: 
  Country: None (occurrence: None)
  Receive Date: 20120517
  Receipt Date: 20120210
  Transmission Date: 20120825
  Serious: No
  Sender: FDA-Public Use
  Company Number: USA/USA/12/0022996

PATIENT
  Age: 52 Year
  Sex: Female

DRUGS (1)
  1. RANITIDINE [Suspect]
     Indication: GASTROOESOPHAGEAL REFLUX DISEASE
     Dosage: 7 MG, 1 IN 1 D, ORAL
     Route: 048
     Dates: start: 20120207, end: 20120209

REACTIONS (2)
  - TIC [None]
  - TARDIVE DYSKINESIA [None]
